FAERS Safety Report 7668332-1 (Version None)
Quarter: 2011Q3

REPORT INFORMATION
  Report Type: 
  Country: None (occurrence: None)
  Receive Date: 20110808
  Receipt Date: 20110801
  Transmission Date: 20111222
  Serious: Yes (Hospitalization, Other)
  Sender: FDA-Public Use
  Company Number: FR-AMGEN-FRASP2011038705

PATIENT
  Age: 63 Year
  Sex: Male

DRUGS (14)
  1. NEULASTA [Suspect]
     Indication: CHEMOTHERAPY
     Dosage: 6 MG, UNK
     Route: 058
     Dates: start: 20110520, end: 20110618
  2. NEXIUM [Concomitant]
     Dosage: 20 MG, UNK
  3. EFFEXOR [Concomitant]
     Dosage: 75 MG, UNK
  4. ATORVASTATIN CALCIUM [Concomitant]
     Dosage: 10 MG, UNK
  5. LEDERFOLINE [Concomitant]
     Dosage: 25 MG, QWK
  6. RITUXIMAB (MAMMAL/HAMSTER/CHINESE HAMSTERS CELLS) [Suspect]
     Dosage: 750 MG, UNK
     Route: 042
     Dates: start: 20110517, end: 20110616
  7. METFORMIN HCL [Concomitant]
     Dosage: 700 MG, UNK
  8. ASPIRIN [Concomitant]
     Dosage: 75 MG, UNK
  9. DEPAKOTE [Concomitant]
     Dosage: 500 MG, UNK
  10. LEXOMIL [Concomitant]
  11. FLUDARABINE PHOSPHATE [Suspect]
     Dosage: UNK
     Route: 042
     Dates: start: 20110517, end: 20110616
  12. CYCLOPHOSPHAMIDE [Suspect]
     Dosage: 500 MG, UNK
     Route: 042
     Dates: start: 20110517, end: 20110616
  13. BACTRIM [Concomitant]
  14. VALACYCLOVIR HYDROCHLORIDE [Concomitant]
     Dosage: 500 MG, BID

REACTIONS (3)
  - LYMPHOPENIA [None]
  - PYREXIA [None]
  - PANCYTOPENIA [None]
